FAERS Safety Report 5647465-5 (Version None)
Quarter: 2008Q1

REPORT INFORMATION
  Report Type: 
  Country: None (occurrence: None)
  Receive Date: 20080228
  Receipt Date: 20080222
  Transmission Date: 20080703
  Serious: Yes (Other)
  Sender: FDA-Public Use
  Company Number: CHPA2008US03404

PATIENT
  Age: 45 Year
  Sex: Male

DRUGS (1)
  1. MAALOX ANTIACID/ANTIGAS RS LIQ SMTHCHERRY (NCH)(MAGNESIUM HYDROXIDE, A [Suspect]
     Indication: ABDOMINAL PAIN UPPER
     Dosage: 3 TSP, QID, ORAL
     Route: 048
     Dates: start: 20080221

REACTIONS (1)
  - HAEMATOCHEZIA [None]
